FAERS Safety Report 6358770-1 (Version None)
Quarter: 2009Q3

REPORT INFORMATION
  Report Type: 
  Country: None (occurrence: None)
  Receive Date: 20090916
  Receipt Date: 20090805
  Transmission Date: 20100115
  Serious: No
  Sender: FDA-Public Use
  Company Number: US-ABBOTT-09P-163-0590041-00

PATIENT
  Sex: Male
  Weight: 83.99 kg

DRUGS (5)
  1. TRILIPIX [Suspect]
     Indication: BLOOD CHOLESTEROL INCREASED
     Route: 048
  2. JANUVIA [Concomitant]
     Indication: DIABETES MELLITUS
  3. COUMADIN [Concomitant]
     Indication: DEEP VEIN THROMBOSIS
  4. FLOMAX [Concomitant]
     Indication: PROSTATIC DISORDER
  5. UNKNOWN DIABETIC MEDICATION [Concomitant]
     Indication: DIABETES MELLITUS

REACTIONS (1)
  - BLOOD CHOLESTEROL ABNORMAL [None]
